FAERS Safety Report 10004363 (Version 2)
Quarter: 2014Q1

REPORT INFORMATION
  Report Type: Spontaneous
  Country: US (occurrence: US)
  Receive Date: 20140312
  Receipt Date: 20140312
  Transmission Date: 20141002
  Serious: Yes (Other)
  Sender: FDA-Public Use
  Company Number: US-INCYTE CORPORATION-2013IN001656

PATIENT
  Age: 72 Year
  Sex: Male
  Weight: 67 kg

DRUGS (5)
  1. JAKAFI [Suspect]
     Indication: MYELOFIBROSIS
     Dosage: 5 MG, BID
     Route: 048
     Dates: start: 20130220, end: 20130701
  2. JAKAFI [Suspect]
     Dosage: 15 MG, BID
     Route: 048
     Dates: start: 20130905
  3. IBEROGAST [Concomitant]
  4. CREON [Concomitant]
  5. DICYCLOMINE [Concomitant]

REACTIONS (6)
  - Thrombocytopenia [Recovered/Resolved]
  - Abdominal distension [Recovered/Resolved]
  - Splenomegaly [Recovered/Resolved]
  - Arthralgia [Recovered/Resolved]
  - Tenderness [Recovered/Resolved]
  - Full blood count decreased [Recovered/Resolved]
